FAERS Safety Report 6330765-3 (Version None)
Quarter: 2009Q3

REPORT INFORMATION
  Report Type: 
  Country: None (occurrence: None)
  Receive Date: 20090827
  Receipt Date: 20090821
  Transmission Date: 20100115
  Serious: Yes (Other)
  Sender: FDA-Public Use
  Company Number: IT-BAXTER-2009BH013086

PATIENT
  Age: 1 Month
  Sex: Female

DRUGS (9)
  1. CYCLOPHOSPHAMIDE [Suspect]
     Indication: GLIOBLASTOMA
     Route: 065
  2. METHOTREXATE GENERIC [Suspect]
     Indication: GLIOBLASTOMA
     Route: 065
  3. CARBOPLATIN [Suspect]
     Indication: GLIOBLASTOMA
     Route: 065
  4. CARBOPLATIN [Suspect]
     Route: 065
  5. ETOPOSIDE [Suspect]
     Indication: GLIOBLASTOMA
     Route: 065
  6. ETOPOSIDE [Suspect]
     Route: 065
  7. VINCRISTINE SULFATE GENERIC [Suspect]
     Indication: GLIOBLASTOMA
     Route: 065
  8. THIOTEPA [Suspect]
     Indication: GLIOBLASTOMA
     Route: 065
  9. MELPHALAN HYDROCHLORIDE [Suspect]
     Indication: GLIOBLASTOMA
     Route: 065

REACTIONS (5)
  - ANAEMIA [None]
  - FEBRILE NEUTROPENIA [None]
  - MUCOSAL INFLAMMATION [None]
  - THROMBOCYTOPENIA [None]
  - TRANSAMINASES INCREASED [None]
